FAERS Safety Report 5147154-X (Version None)
Quarter: 2006Q4

REPORT INFORMATION
  Report Type: 
  Country: None (occurrence: None)
  Receive Date: 20061108
  Receipt Date: 20061108
  Transmission Date: 20070319
  Serious: Yes (Life-Threatening, Hospitalization)
  Sender: FDA-Public Use
  Company Number: None

PATIENT
  Age: 3 Year
  Sex: Female
  Weight: 16.72 kg

DRUGS (2)
  1. ZOSYN [Suspect]
     Indication: GLYCOGEN STORAGE DISORDER
     Dosage: 1500 MG   Q6HR    IV
     Route: 042
  2. ZOSYN [Suspect]
     Indication: INFUSION
     Dosage: 1500 MG   Q6HR    IV
     Route: 042

REACTIONS (4)
  - ANGIONEUROTIC OEDEMA [None]
  - ERYTHEMA [None]
  - PRURITUS [None]
  - PYREXIA [None]
